FAERS Safety Report 14767079 (Version 2)
Quarter: 2018Q2

REPORT INFORMATION
  Report Type: Report from Study
  Country: US (occurrence: US)
  Receive Date: 20180417
  Receipt Date: 20180502
  Transmission Date: 20180711
  Serious: Yes (Other)
  Sender: FDA-Public Use
  Company Number: US-ROCHE-2106916

PATIENT
  Age: 51 Year
  Sex: Male

DRUGS (1)
  1. OCREVUS [Suspect]
     Active Substance: OCRELIZUMAB
     Indication: MULTIPLE SCLEROSIS
     Dosage: ONGOING: UNKNOWN
     Route: 065
     Dates: start: 20180405

REACTIONS (5)
  - Abnormal behaviour [Unknown]
  - Disorientation [Unknown]
  - Incontinence [Unknown]
  - Hallucination, visual [Unknown]
  - Seizure [Unknown]

NARRATIVE: CASE EVENT DATE: 20180407
